FAERS Safety Report 8220888-6 (Version None)
Quarter: 2012Q1

REPORT INFORMATION
  Report Type: 
  Country: None (occurrence: None)
  Receive Date: 20120314
  Receipt Date: 20120302
  Transmission Date: 20120608
  Serious: Yes (Hospitalization)
  Sender: FDA-Public Use
  Company Number: US-ELI_LILLY_AND_COMPANY-US201201007820

PATIENT
  Sex: Female

DRUGS (23)
  1. FORTEO [Suspect]
     Dosage: 20 UG, QD
     Dates: start: 20120202
  2. TRAMADOL HCL [Concomitant]
     Indication: PAIN
     Dosage: 50 MG, PRN
  3. LAXATIVES [Concomitant]
  4. LISINOPRIL AND HYDROCHLOROTHIAZIDE [Concomitant]
     Dosage: 45 MG, QD
  5. CLONIDINE [Concomitant]
     Dosage: UNK, TID
  6. ASPIRIN [Concomitant]
     Dosage: UNK, QD
  7. VITAMIN D [Concomitant]
     Dosage: 1200 IU, QD
  8. AMLODIPINE [Concomitant]
     Dosage: 2.5 MG, UNK
  9. IBUPROFEN [Concomitant]
     Indication: PAIN
     Dosage: UNK, PRN
  10. MULTI-VITAMINS [Concomitant]
  11. NORVASC [Concomitant]
     Dosage: 2.5 MG, QD
  12. SIMVASTATIN [Concomitant]
     Dosage: 40 MG, EACH EVENING
  13. CLOBETASOL PROPIONATE [Concomitant]
     Indication: PSORIASIS
     Route: 061
  14. FORTEO [Suspect]
     Indication: OSTEOPOROSIS
     Dosage: 20 UG, QD
     Dates: start: 20120101, end: 20120115
  15. COZAAR [Concomitant]
  16. STOOL SOFTENER [Concomitant]
     Dosage: UNK, PRN
  17. CALCIUM CARBONATE [Concomitant]
     Dosage: 1200 MG, QD
  18. CLONIDINE [Concomitant]
     Dosage: UNK, EACH EVENING
  19. ASPIRIN [Concomitant]
     Dosage: 81 MG, UNK
  20. LASIX [Concomitant]
  21. COREG [Concomitant]
  22. TYLENOL (CAPLET) [Concomitant]
     Indication: PAIN
     Dosage: UNK, PRN
  23. OYSTER SHELL CALCIUM [Concomitant]

REACTIONS (2)
  - ATRIAL FIBRILLATION [None]
  - CARDIAC FAILURE CONGESTIVE [None]
